FAERS Safety Report 24034726 (Version 1)
Quarter: 2024Q2

REPORT INFORMATION
  Report Type: Spontaneous
  Country: US (occurrence: None)
  Receive Date: 20240628
  Receipt Date: 20240628
  Transmission Date: 20240716
  Serious: Yes (Other)
  Sender: FDA-Public Use
  Company Number: None

PATIENT
  Age: 71 Year
  Sex: Female
  Weight: 56.25 kg

DRUGS (2)
  1. REPATHA [Suspect]
     Active Substance: EVOLOCUMAB
     Indication: Cardiac disorder
     Dosage: OTHER QUANTITY : 1 INJECTION(S)?OTHER FREQUENCY : EVERY 14 DAYS?
     Route: 058
     Dates: start: 20240616, end: 20240618
  2. AMLODIPINE [Concomitant]
     Active Substance: AMLODIPINE BESYLATE

REACTIONS (2)
  - Hypertension [None]
  - Extra dose administered [None]

NARRATIVE: CASE EVENT DATE: 20240616
